FAERS Safety Report 5284625-X (Version None)
Quarter: 2007Q2

REPORT INFORMATION
  Report Type: 
  Country: None (occurrence: None)
  Receive Date: 20070403
  Receipt Date: 20070328
  Transmission Date: 20071010
  Serious: Yes (Life-Threatening, Hospitalization, Other)
  Sender: FDA-Public Use
  Company Number: JP-ELI_LILLY_AND_COMPANY-US_020988395

PATIENT
  Age: 8 Year
  Sex: Male
  Weight: 22 kg

DRUGS (1)
  1. HUMATROPE [Suspect]
     Indication: BODY HEIGHT BELOW NORMAL
     Dosage: 2 U, DAILY (1/D)
     Route: 058
     Dates: start: 20000101, end: 20020801

REACTIONS (3)
  - ABDOMINAL PAIN [None]
  - BENIGN INTRACRANIAL HYPERTENSION [None]
  - MENINGITIS [None]
